FAERS Safety Report 10890111 (Version 1)
Quarter: 2015Q1

REPORT INFORMATION
  Report Type: Spontaneous
  Country: BR (occurrence: BR)
  Receive Date: 20150305
  Receipt Date: 20150305
  Transmission Date: 20150721
  Serious: Yes (Other)
  Sender: FDA-Public Use
  Company Number: BR-JNJFOC-20150214499

PATIENT
  Sex: Female
  Weight: 64 kg

DRUGS (1)
  1. RISPERDAL CONSTA [Suspect]
     Active Substance: RISPERIDONE
     Indication: BIPOLAR DISORDER
     Route: 030
     Dates: start: 201312, end: 201403

REACTIONS (19)
  - Asthenia [Not Recovered/Not Resolved]
  - Bedridden [Not Recovered/Not Resolved]
  - Burning sensation [Not Recovered/Not Resolved]
  - Menstrual disorder [Not Recovered/Not Resolved]
  - Dry eye [Not Recovered/Not Resolved]
  - Feeling of despair [Not Recovered/Not Resolved]
  - Seborrhoea [Not Recovered/Not Resolved]
  - Acne [Not Recovered/Not Resolved]
  - Weight decreased [Not Recovered/Not Resolved]
  - Metabolic disorder [Not Recovered/Not Resolved]
  - Skin injury [Not Recovered/Not Resolved]
  - Hypotonia [Not Recovered/Not Resolved]
  - Haemorrhage [Not Recovered/Not Resolved]
  - Dyspnoea [Not Recovered/Not Resolved]
  - Suicidal ideation [Unknown]
  - Unevaluable event [Not Recovered/Not Resolved]
  - Eye disorder [Not Recovered/Not Resolved]
  - Alopecia [Not Recovered/Not Resolved]
  - Dry skin [Not Recovered/Not Resolved]
